FAERS Safety Report 4884911-9 (Version None)
Quarter: 2006Q1

REPORT INFORMATION
  Report Type: 
  Country: None (occurrence: None)
  Receive Date: 20060117
  Receipt Date: 20060105
  Transmission Date: 20060701
  Serious: Yes (Hospitalization)
  Sender: FDA-Public Use
  Company Number: 2006RL000004

PATIENT
  Sex: Male

DRUGS (1)
  1. DYNACIRC [Suspect]
     Indication: BLOOD PRESSURE
     Dosage: SEE IMAGE, PO
     Route: 048
     Dates: start: 19910101

REACTIONS (3)
  - DRUG INEFFECTIVE [None]
  - DYSPNOEA [None]
  - MEDICATION RESIDUE [None]
